FAERS Safety Report 6022678-1 (Version None)
Quarter: 2008Q4

REPORT INFORMATION
  Report Type: 
  Country: None (occurrence: None)
  Receive Date: 20081222
  Receipt Date: 20081222
  Transmission Date: 20090506
  Serious: No
  Sender: FDA-Public Use
  Company Number: None

PATIENT
  Age: 53 Year
  Sex: Female
  Weight: 80.2867 kg

DRUGS (8)
  1. EMSAM [Suspect]
     Indication: DEPRESSION
     Dosage: 6MG EVERY NIGHT TRANSDERMAL
     Route: 062
     Dates: start: 20081203, end: 20081219
  2. ABILIFY [Concomitant]
  3. SYNTHROID [Concomitant]
  4. ALLEGRA [Concomitant]
  5. PROTONIX [Concomitant]
  6. M.V.I. [Concomitant]
  7. CA+ [Concomitant]
  8. KLONOPIN [Concomitant]

REACTIONS (4)
  - DRUG EFFECT DECREASED [None]
  - ERYTHEMA [None]
  - PRODUCT QUALITY ISSUE [None]
  - PRURITUS [None]
